FAERS Safety Report 19887031 (Version 1)
Quarter: 2021Q3

REPORT INFORMATION
  Report Type: Report from Study
  Country: US (occurrence: US)
  Receive Date: 20210927
  Receipt Date: 20210927
  Transmission Date: 20211014
  Serious: Yes (Hospitalization)
  Sender: FDA-Public Use
  Company Number: US-JNJFOC-20210938977

PATIENT
  Age: 77 Year
  Sex: Male

DRUGS (1)
  1. SIMPONI [Suspect]
     Active Substance: GOLIMUMAB
     Indication: MUSCULOSKELETAL DISORDER
     Route: 058

REACTIONS (4)
  - Product use in unapproved indication [Unknown]
  - COVID-19 pneumonia [Unknown]
  - Off label use [Unknown]
  - Orchitis noninfective [Unknown]
